FAERS Safety Report 8938458 (Version 2)
Quarter: 2012Q4

REPORT INFORMATION
  Report Type: 
  Country: US (occurrence: US)
  Receive Date: 20121130
  Receipt Date: 20121211
  Transmission Date: 20130627
  Serious: Yes (Hospitalization)
  Sender: FDA-Public Use
  Company Number: US-ACTELION-A-NJ2012-75391

PATIENT
  Age: 47 Year
  Sex: Female

DRUGS (3)
  1. VELETRI [Suspect]
     Indication: PULMONARY ARTERIAL HYPERTENSION
     Dosage: 22 ng/kg, per min
     Route: 041
     Dates: start: 20120229
  2. TRACLEER [Suspect]
     Indication: PULMONARY ARTERIAL HYPERTENSION
     Dosage: 62.5 mg, bid
     Route: 048
     Dates: start: 20120309, end: 201204
  3. TRACLEER [Suspect]
     Dosage: 125 mg, bid
     Route: 048
     Dates: start: 201204

REACTIONS (1)
  - General physical health deterioration [Not Recovered/Not Resolved]
